FAERS Safety Report 10176886 (Version 1)
Quarter: 2014Q2

REPORT INFORMATION
  Report Type: Spontaneous
  Country: IL (occurrence: IL)
  Receive Date: 20140516
  Receipt Date: 20140516
  Transmission Date: 20141212
  Serious: Yes (Death)
  Sender: FDA-Public Use
  Company Number: IL-IPSEN BIOPHARMACEUTICALS, INC.-2014-2344

PATIENT
  Age: 66 Year
  Sex: Female

DRUGS (1)
  1. SOMATULINE AUTOGEL 120MG [Suspect]
     Indication: NEUROENDOCRINE TUMOUR
     Dosage: 120MG
     Route: 058
     Dates: start: 20131001, end: 20140304

REACTIONS (1)
  - Death [Fatal]
